FAERS Safety Report 9375916 (Version 1)
Quarter: 2013Q2

REPORT INFORMATION
  Report Type: Other
  Country: GB (occurrence: GB)
  Receive Date: 20130628
  Receipt Date: 20130628
  Transmission Date: 20140414
  Serious: Yes (Life-Threatening, Hospitalization)
  Sender: FDA-Public Use
  Company Number: GB-ACTAVIS-2013-11786

PATIENT
  Age: 51 Year
  Sex: Female

DRUGS (7)
  1. QUETIAPINE (UNKNOWN) [Suspect]
     Indication: PRODUCT USED FOR UNKNOWN INDICATION
     Dosage: 300 MG, 24 TIMES IN A DAY
     Route: 065
     Dates: start: 20130328, end: 20130328
  2. PARACETAMOL (UNKNOWN) [Suspect]
     Indication: PRODUCT USED FOR UNKNOWN INDICATION
     Dosage: 500 MG, 16 TIMES IN A DAY
     Route: 065
     Dates: start: 20130328, end: 20130328
  3. DOXYCYCLINE (UNKNOWN) [Suspect]
     Indication: PRODUCT USED FOR UNKNOWN INDICATION
     Dosage: 100 MG, 6 TIMES A DAY
     Route: 065
     Dates: start: 20130328, end: 20130328
  4. ZAPONEX [Suspect]
     Indication: PRODUCT USED FOR UNKNOWN INDICATION
     Dosage: UNK
     Route: 048
     Dates: start: 20090903, end: 201304
  5. ZAPONEX [Suspect]
     Dosage: UNK
     Route: 048
     Dates: start: 20090803, end: 200908
  6. ZAPONEX [Suspect]
     Dosage: UNK
     Route: 048
     Dates: start: 20130408
  7. PROPANOL [Suspect]
     Indication: PRODUCT USED FOR UNKNOWN INDICATION
     Dosage: 10 MG, 22 TIMES IN A DAY
     Route: 065
     Dates: start: 20130328, end: 20130328

REACTIONS (6)
  - Hypotension [Unknown]
  - Overdose [Unknown]
  - Gamma-glutamyltransferase increased [Unknown]
  - Protein total decreased [Unknown]
  - Blood albumin decreased [Unknown]
  - Blood alkaline phosphatase increased [Unknown]
